FAERS Safety Report 17722455 (Version 4)
Quarter: 2024Q4

REPORT INFORMATION
  Report Type: Spontaneous
  Country: US (occurrence: US)
  Receive Date: 20200429
  Receipt Date: 20241015
  Transmission Date: 20250114
  Serious: No
  Sender: PFIZER
  Company Number: US-PFIZER INC-2019462796

PATIENT
  Age: 84 Year
  Sex: Female

DRUGS (1)
  1. IBRANCE [Suspect]
     Active Substance: PALBOCICLIB
     Indication: Breast cancer female
     Dosage: 75 MG, TAKE FOR 21 DAYS THEN REST FOR SEVEN DAYS, REPEAT EVERY 28 DAYS
     Route: 048

REACTIONS (1)
  - Eye disorder [Unknown]
